FAERS Safety Report 10434232 (Version 1)
Quarter: 2014Q3

REPORT INFORMATION
  Report Type: Spontaneous
  Country: GB (occurrence: GB)
  Receive Date: 20140905
  Receipt Date: 20140905
  Transmission Date: 20150326
  Serious: Yes (Life-Threatening)
  Sender: FDA-Public Use
  Company Number: GB-GE HEALTHCARE MEDICAL DIAGNOSTICS-VISP-PR-1408S-0398

PATIENT
  Age: 77 Year
  Sex: Male
  Weight: 56.8 kg

DRUGS (14)
  1. ASPIRIN. [Concomitant]
     Active Substance: ASPIRIN
     Dates: start: 20140425, end: 20140805
  2. PARACETAMOL [Concomitant]
     Active Substance: ACETAMINOPHEN
     Dates: start: 20140425, end: 20140805
  3. SOLIFENACIN [Concomitant]
     Active Substance: SOLIFENACIN
     Dates: start: 20140425, end: 20140807
  4. TIOTROPIUM [Concomitant]
     Active Substance: TIOTROPIUM
     Dates: start: 20140425, end: 20140807
  5. VISIPAQUE [Suspect]
     Active Substance: IODIXANOL
     Indication: PRODUCT USED FOR UNKNOWN INDICATION
     Dosage: DOSE NOT REPORTED
     Route: 065
     Dates: start: 20140809, end: 20140809
  6. RAMIPRIL. [Concomitant]
     Active Substance: RAMIPRIL
     Dates: start: 20140425, end: 20140805
  7. SALAMOL [Concomitant]
     Active Substance: ALBUTEROL
     Dates: start: 20140520, end: 20140805
  8. TICAGRELOR [Concomitant]
     Active Substance: TICAGRELOR
     Dates: start: 20140425, end: 20140805
  9. ATORVASTATIN [Concomitant]
     Active Substance: ATORVASTATIN
     Dates: start: 20140425, end: 20140805
  10. FLUTICASONE [Concomitant]
     Active Substance: FLUTICASONE\FLUTICASONE PROPIONATE
     Dates: start: 20140520, end: 20140807
  11. NEBIVOLOL [Concomitant]
     Active Substance: NEBIVOLOL
     Dates: start: 20140425, end: 20140805
  12. VISIPAQUE [Suspect]
     Active Substance: IODIXANOL
     Indication: DIAGNOSTIC PROCEDURE
  13. AVAMYS [Concomitant]
     Active Substance: FLUTICASONE FUROATE
     Dates: start: 20140603, end: 20140703
  14. CLOPIDOGREL [Concomitant]
     Active Substance: CLOPIDOGREL BISULFATE
     Dates: start: 20140425, end: 20140807

REACTIONS (1)
  - Oropharyngeal swelling [Recovered/Resolved]

NARRATIVE: CASE EVENT DATE: 20140815
